FAERS Safety Report 6241579-7 (Version None)
Quarter: 2009Q2

REPORT INFORMATION
  Report Type: 
  Country: None (occurrence: None)
  Receive Date: 20090623
  Receipt Date: 20040728
  Transmission Date: 20091009
  Serious: Yes (Hospitalization)
  Sender: FDA-Public Use
  Company Number: ES-ROCHE-376367

PATIENT
  Sex: Male
  Weight: 80 kg

DRUGS (92)
  1. DACLIZUMAB [Suspect]
     Route: 042
     Dates: start: 20031111, end: 20031111
  2. DACLIZUMAB [Suspect]
     Dosage: WEEK-2 AND 4 VISIT
     Route: 042
     Dates: start: 20031125
  3. DACLIZUMAB [Suspect]
     Dosage: WEEK-6 VISIT
     Route: 042
     Dates: start: 20031222
  4. DACLIZUMAB [Suspect]
     Route: 042
     Dates: start: 20040109
  5. MYCOPHENOLATE MOFETIL [Suspect]
     Route: 048
     Dates: start: 20031111
  6. MYCOPHENOLATE MOFETIL [Suspect]
     Route: 048
     Dates: start: 20040109, end: 20040109
  7. MYCOPHENOLATE MOFETIL [Suspect]
     Route: 048
     Dates: start: 20040110
  8. MYCOPHENOLATE MOFETIL [Suspect]
     Route: 048
     Dates: start: 20040114
  9. MYCOPHENOLATE MOFETIL [Suspect]
     Route: 048
     Dates: start: 20040116
  10. MYCOPHENOLATE MOFETIL [Suspect]
     Route: 048
     Dates: start: 20040122, end: 20040123
  11. MYCOPHENOLATE MOFETIL [Suspect]
     Route: 048
     Dates: start: 20040209, end: 20040209
  12. MYCOPHENOLATE MOFETIL [Suspect]
     Route: 048
     Dates: start: 20040210, end: 20040210
  13. MYCOPHENOLATE MOFETIL [Suspect]
     Route: 048
     Dates: start: 20040211
  14. MYCOPHENOLATE MOFETIL [Suspect]
     Route: 048
     Dates: start: 20040213
  15. MYCOPHENOLATE MOFETIL [Suspect]
     Route: 048
     Dates: start: 20040219
  16. MYCOPHENOLATE MOFETIL [Suspect]
     Route: 048
     Dates: start: 20040310, end: 20040315
  17. MYCOPHENOLATE MOFETIL [Suspect]
     Dosage: DOSING AMOUNT CAPTURED IN MG AS 250 GRAM BEING A VERY HIGH DOSE SEEMS TO BE A TYPOGRAPHICAL ERROR
     Route: 048
     Dates: start: 20040331
  18. MYCOPHENOLATE MOFETIL [Suspect]
     Route: 048
     Dates: start: 20040416
  19. MYCOPHENOLATE MOFETIL [Suspect]
     Route: 048
     Dates: start: 20040608
  20. MYCOPHENOLATE MOFETIL [Suspect]
     Route: 048
     Dates: start: 20040628
  21. MYCOPHENOLATE MOFETIL [Suspect]
     Route: 048
     Dates: start: 20040706
  22. MYCOPHENOLATE MOFETIL [Suspect]
     Route: 048
     Dates: start: 20040805
  23. MYCOPHENOLATE MOFETIL [Suspect]
     Route: 048
     Dates: start: 20040906
  24. MYCOPHENOLATE MOFETIL [Suspect]
     Route: 048
     Dates: start: 20050713
  25. MYCOPHENOLATE MOFETIL [Suspect]
     Route: 048
     Dates: start: 20050726
  26. SIROLIMUS [Suspect]
     Route: 048
     Dates: start: 20031111, end: 20031111
  27. SIROLIMUS [Suspect]
     Route: 048
     Dates: start: 20031112, end: 20040121
  28. SIROLIMUS [Suspect]
     Route: 048
     Dates: start: 20040122, end: 20040123
  29. SIROLIMUS [Suspect]
     Route: 048
     Dates: start: 20040126, end: 20040127
  30. TACROLIMUS [Suspect]
     Route: 048
     Dates: start: 20040212
  31. TACROLIMUS [Suspect]
     Route: 048
     Dates: start: 20040706
  32. TACROLIMUS [Suspect]
     Route: 048
     Dates: start: 20060221
  33. TACROLIMUS [Suspect]
     Route: 048
     Dates: start: 20061218
  34. VALGANCICLOVIR HCL [Suspect]
     Indication: DRUG USE FOR UNKNOWN INDICATION
     Dosage: DRUG: VALGANCYCLOVIR
     Route: 048
     Dates: start: 20040113, end: 20040117
  35. VALGANCICLOVIR HCL [Suspect]
     Route: 048
     Dates: start: 20040217
  36. VALGANCICLOVIR HCL [Suspect]
     Route: 048
     Dates: start: 20040307, end: 20040315
  37. METILPREDNISOLONE [Suspect]
     Dosage: FORM: VIAL
     Route: 042
     Dates: start: 20031111, end: 20031113
  38. METILPREDNISOLONE [Suspect]
     Route: 042
     Dates: start: 20040117, end: 20040120
  39. METILPREDNISOLONE [Suspect]
     Route: 042
     Dates: start: 20040124, end: 20040128
  40. METILPREDNISOLONE [Suspect]
     Route: 042
     Dates: start: 20040316, end: 20040319
  41. METILPREDNISOLONE [Suspect]
     Route: 042
     Dates: start: 20040707, end: 20040709
  42. METILPREDNISOLONE [Suspect]
     Route: 042
     Dates: start: 20041112
  43. PREDNISONE [Suspect]
     Route: 048
     Dates: start: 20031113, end: 20040124
  44. PREDNISONE [Suspect]
     Route: 048
     Dates: start: 20040128, end: 20040317
  45. PREDNISONE [Suspect]
     Route: 048
     Dates: start: 20040319, end: 20040707
  46. PREDNISONE [Suspect]
     Route: 048
     Dates: start: 20040709
  47. OMEPRAZOL [Concomitant]
     Route: 048
     Dates: start: 20031111
  48. 1ALPHA,25-DIHYDROXYVITAMIN D3 [Concomitant]
     Route: 048
     Dates: start: 20031118
  49. COTRIM [Concomitant]
     Route: 048
     Dates: start: 20031113
  50. AMLODIPINE [Concomitant]
     Route: 048
     Dates: end: 20040119
  51. AMLODIPINE [Concomitant]
     Route: 048
     Dates: start: 20040212, end: 20040611
  52. AMLODIPINE [Concomitant]
     Route: 048
     Dates: start: 20040628, end: 20040706
  53. AMLODIPINE [Concomitant]
     Route: 048
     Dates: start: 20040906
  54. CARVEDILOL [Concomitant]
     Route: 048
     Dates: start: 20031121, end: 20040119
  55. SULFATO FERROSO [Concomitant]
     Route: 048
     Dates: start: 20031121, end: 20040115
  56. DIACEPAM [Concomitant]
     Route: 048
     Dates: start: 20040307, end: 20040312
  57. NOVONIACIN [Concomitant]
     Dosage: REPORTED AS 300/MG.
     Dates: start: 20040205, end: 20040217
  58. TRIMETHOPRIM + SULFAMETHOXAZOLE [Concomitant]
     Route: 048
     Dates: start: 20031113
  59. TRIMETHOPRIM + SULFAMETHOXAZOLE [Concomitant]
     Route: 048
     Dates: start: 20040204, end: 20040511
  60. AMOXICILLIN AND CLAVULANATE POTASSIUM [Concomitant]
     Dosage: DRUG: AMOXICILLIN-CLAVULANIC
     Route: 042
     Dates: start: 20031111
  61. AMOXICILLIN AND CLAVULANATE POTASSIUM [Concomitant]
     Dosage: FORM: VIAL
     Route: 042
     Dates: start: 20040309
  62. AMOXICILLIN AND CLAVULANATE POTASSIUM [Concomitant]
     Dosage: DRUG: AMOXICILLIN-CLAVULANIC
     Route: 048
     Dates: start: 20040108, end: 20040116
  63. AMOXICILLIN AND CLAVULANATE POTASSIUM [Concomitant]
     Route: 048
     Dates: start: 20040312, end: 20040330
  64. AMOXICILLIN AND CLAVULANATE POTASSIUM [Concomitant]
     Route: 048
     Dates: start: 20040707, end: 20040715
  65. CEFTRIAXONE [Concomitant]
     Dosage: FORM: VIAL
     Route: 042
     Dates: start: 20040116, end: 20040119
  66. CEFTRIAXONE [Concomitant]
     Route: 042
     Dates: start: 20040122, end: 20040128
  67. CEFTRIAXONE [Concomitant]
     Route: 042
     Dates: start: 20040307, end: 20040309
  68. CEFTRIAXONE [Concomitant]
     Route: 042
     Dates: start: 20040716, end: 20040728
  69. CIPROFLOXACIN [Concomitant]
     Route: 048
     Dates: start: 20040122, end: 20040205
  70. CIPROFLOXACIN [Concomitant]
     Route: 048
     Dates: start: 20040224, end: 20040229
  71. CIPROFLOXACIN [Concomitant]
     Route: 048
     Dates: start: 20040312, end: 20040611
  72. CIPROFLOXACIN [Concomitant]
     Dosage: FORM: VIAL
     Route: 042
     Dates: start: 20040307
  73. EPOGEN [Concomitant]
     Dosage: FORM: VIAL
     Route: 058
     Dates: end: 20031122
  74. EPOGEN [Concomitant]
     Route: 058
     Dates: start: 20040109, end: 20040115
  75. EPOGEN [Concomitant]
     Route: 058
     Dates: start: 20040121
  76. EPOGEN [Concomitant]
     Route: 058
     Dates: start: 20040212
  77. EPOGEN [Concomitant]
     Route: 058
     Dates: start: 20040305
  78. EPOGEN [Concomitant]
     Route: 058
     Dates: start: 20040309
  79. EPOGEN [Concomitant]
     Route: 058
     Dates: start: 20040315
  80. EPOGEN [Concomitant]
     Route: 058
     Dates: start: 20040323
  81. EPOGEN [Concomitant]
     Route: 058
     Dates: start: 20040331, end: 20040407
  82. EPOGEN [Concomitant]
     Route: 058
     Dates: start: 20041113
  83. GANCICLOVIR [Concomitant]
     Dosage: DRUG: GANCYCLOVIR; FORM: VIAL
     Route: 042
     Dates: start: 20040119, end: 20040202
  84. GANCICLOVIR [Concomitant]
     Route: 042
     Dates: start: 20040206
  85. ISONIAZID [Concomitant]
     Route: 048
     Dates: start: 20040205, end: 20040217
  86. ISONIAZID [Concomitant]
     Route: 048
     Dates: start: 20040219, end: 20040707
  87. ISONIAZID [Concomitant]
     Route: 048
     Dates: start: 20040709
  88. LEVOFLOXACIN [Concomitant]
     Dosage: FORM: VIAL
     Route: 042
     Dates: start: 20040204, end: 20040211
  89. VANCOMYCIN [Concomitant]
     Dosage: FORM: VIAL
     Route: 042
     Dates: start: 20040204, end: 20040208
  90. FILGRASTIM [Concomitant]
     Dosage: DRUG: FILGASTRIM: FORM: VIAL; DOSAGE: 48 MU
     Route: 058
     Dates: start: 20040201, end: 20040203
  91. FILGRASTIM [Concomitant]
     Dosage: DOSAGE: 48 MU
     Route: 058
     Dates: start: 20040204, end: 20040205
  92. FILGRASTIM [Concomitant]
     Dosage: DOSAGE: 34 MU
     Route: 058
     Dates: start: 20040317, end: 20040322

REACTIONS (4)
  - BONE MARROW TOXICITY [None]
  - CYTOMEGALOVIRUS VIRAEMIA [None]
  - PYELONEPHRITIS ACUTE [None]
  - THROMBOTIC MICROANGIOPATHY [None]
